FAERS Safety Report 6532216-2 (Version None)
Quarter: 2010Q1

REPORT INFORMATION
  Report Type: 
  Country: None (occurrence: None)
  Receive Date: 20100107
  Receipt Date: 20100107
  Transmission Date: 20100710
  Serious: Yes (Disabling, Other)
  Sender: FDA-Public Use
  Company Number: None

PATIENT
  Sex: Female
  Weight: 52.1637 kg

DRUGS (2)
  1. BOTOX [Suspect]
     Indication: CEREBRAL PALSY
     Dosage: 200 - 300 UNITS EVERY 3 MONTHS IM
     Route: 030
     Dates: start: 20080927, end: 20091027
  2. BOTOX [Suspect]
     Indication: MUSCLE TIGHTNESS
     Dosage: 200 - 300 UNITS EVERY 3 MONTHS IM
     Route: 030
     Dates: start: 20080927, end: 20091027

REACTIONS (3)
  - DYSPHAGIA [None]
  - MUSCULAR WEAKNESS [None]
  - NEURALGIA [None]
